FAERS Safety Report 9228131 (Version 1)
Quarter: 2013Q2

REPORT INFORMATION
  Report Type: Spontaneous
  Country: US (occurrence: US)
  Receive Date: 20130412
  Receipt Date: 20130412
  Transmission Date: 20140414
  Serious: Yes (Hospitalization)
  Sender: FDA-Public Use
  Company Number: US-BAYER-2013-044560

PATIENT
  Age: 43 Year
  Sex: Female
  Weight: 126 kg

DRUGS (19)
  1. YAZ [Suspect]
  2. BEYAZ [Suspect]
  3. GIANVI [Suspect]
  4. ANTIBIOTICS [Concomitant]
     Indication: OROPHARYNGEAL PAIN
     Route: 042
  5. ANTIBIOTICS [Concomitant]
     Indication: DIARRHOEA
  6. HYDROMORPHINE [Concomitant]
     Indication: PAIN MANAGEMENT
  7. XANAX [Concomitant]
  8. METFORMIN ER [Concomitant]
  9. DYAZIDE [Concomitant]
  10. ZOCOR [Concomitant]
  11. PRILOSEC [Concomitant]
  12. FISH OIL [Concomitant]
  13. CAL-MAG [Concomitant]
  14. ZINC [Concomitant]
  15. VITAMIN D [Concomitant]
  16. CINNAMON [Concomitant]
  17. KEPPRA [Concomitant]
  18. LORAZEPAM [Concomitant]
     Indication: CONVULSION
     Dosage: 2 MG, UNK
  19. LEVETIRACETAM [Concomitant]

REACTIONS (2)
  - Intracranial venous sinus thrombosis [None]
  - Cerebral infarction [None]
